APPROVED DRUG PRODUCT: DRISDOL
Active Ingredient: ERGOCALCIFEROL
Strength: 50,000 IU
Dosage Form/Route: CAPSULE;ORAL
Application: N003444 | Product #001 | TE Code: AA
Applicant: ESJAY PHARMA LLC
Approved: Approved Prior to Jan 1, 1982 | RLD: Yes | RS: No | Type: RX